FAERS Safety Report 4531199-4 (Version None)
Quarter: 2005Q1

REPORT INFORMATION
  Report Type: 
  Country: None (occurrence: None)
  Receive Date: 20041206
  Receipt Date: 20040901
  Transmission Date: 20050727
  Serious: No
  Sender: FDA-Public Use
  Company Number: USA040977085

PATIENT
  Age: 61 Year
  Sex: Female
  Weight: 70 kg

DRUGS (8)
  1. CYMBALTA [Suspect]
     Dosage: 30 MG DAY
     Dates: start: 20040826
  2. PREVACID [Concomitant]
  3. VIOXX [Concomitant]
  4. SKELAXIN [Concomitant]
  5. ZOCOR [Concomitant]
  6. EVISTA [Concomitant]
  7. TRAZADONE (TRAZODONE) [Concomitant]
  8. ZOLOFT [Concomitant]

REACTIONS (5)
  - ANXIETY [None]
  - CHILLS [None]
  - FEELING ABNORMAL [None]
  - HYPERHIDROSIS [None]
  - THROAT TIGHTNESS [None]
